FAERS Safety Report 9321202 (Version 1)
Quarter: 2013Q2

REPORT INFORMATION
  Report Type: Spontaneous
  Country: AU (occurrence: AU)
  Receive Date: 20130531
  Receipt Date: 20130531
  Transmission Date: 20140414
  Serious: Yes (Hospitalization)
  Sender: FDA-Public Use
  Company Number: AU-PERRIGO-13AU005493

PATIENT
  Age: 50 Year
  Sex: Male

DRUGS (13)
  1. ACETAMINOPHEN 650MG ER 544 [Suspect]
     Indication: PAIN
     Dosage: 1 G Q6 HR PRN
     Route: 048
  2. FLUCLOXACILLIN [Suspect]
     Indication: BACTERIAL INFECTION
     Dosage: 2 G, QD
     Route: 042
  3. FLUCLOXACILLIN [Suspect]
     Dosage: 4 G, QD
     Route: 042
  4. PHENYTOIN [Concomitant]
     Indication: PRODUCT USED FOR UNKNOWN INDICATION
     Dosage: 300 MG, QD
     Route: 065
  5. PHENOBARBITONE [Concomitant]
     Indication: PRODUCT USED FOR UNKNOWN INDICATION
     Dosage: 30 MG, QD
     Route: 065
  6. CARBAMAZEPINE [Concomitant]
     Indication: PRODUCT USED FOR UNKNOWN INDICATION
     Dosage: 1200 MG, QD
     Route: 065
  7. CEFTRIAXONE [Concomitant]
     Indication: URINARY TRACT INFECTION
     Dosage: UNK
     Route: 065
  8. GENTAMYCIN [Concomitant]
     Indication: URINARY TRACT INFECTION
     Dosage: UNK
     Route: 065
  9. TIMOLOL [Concomitant]
     Indication: PYREXIA
     Route: 065
  10. CIPROFLOXACIN [Concomitant]
     Indication: PYREXIA
     Route: 065
  11. FENTANYL [Concomitant]
     Indication: PAIN
     Route: 058
  12. VANCOMYCIN [Concomitant]
     Indication: PRODUCT USED FOR UNKNOWN INDICATION
  13. STREPTOKINASE [Concomitant]
     Indication: PLEURAL EFFUSION
     Route: 034

REACTIONS (2)
  - Acidosis [Recovered/Resolved]
  - Anion gap increased [Recovered/Resolved]
